FAERS Safety Report 17198478 (Version 1)
Quarter: 2019Q4

REPORT INFORMATION
  Report Type: Report from Study
  Country: US (occurrence: US)
  Receive Date: 20191225
  Receipt Date: 20191225
  Transmission Date: 20200122
  Serious: Yes (Other)
  Sender: FDA-Public Use
  Company Number: US-UCBSA-2019021863

PATIENT
  Age: 36 Year
  Sex: Female

DRUGS (2)
  1. CERTOLIZUMAB PEGOL [Suspect]
     Active Substance: CERTOLIZUMAB PEGOL
     Indication: PSORIATIC ARTHROPATHY
  2. CERTOLIZUMAB PEGOL [Suspect]
     Active Substance: CERTOLIZUMAB PEGOL
     Indication: PSORIASIS
     Dosage: 400 MILLIGRAM, EV 2 WEEKS(QOW)
     Dates: start: 20190514, end: 20190903

REACTIONS (9)
  - Photosensitivity reaction [Not Recovered/Not Resolved]
  - Contusion [Recovered/Resolved]
  - Bone cancer [Not Recovered/Not Resolved]
  - Psoriasis [Not Recovered/Not Resolved]
  - Platelet count increased [Unknown]
  - White blood cell count increased [Unknown]
  - Injection site reaction [Not Recovered/Not Resolved]
  - Injection site haemorrhage [Not Recovered/Not Resolved]
  - Arthralgia [Not Recovered/Not Resolved]

NARRATIVE: CASE EVENT DATE: 2019
